FAERS Safety Report 6948666 (Version 3)
Quarter: 2020Q3

REPORT INFORMATION
  Report Type: Report from Study
  Country: US (occurrence: US)
  Receive Date: 20090323
  Receipt Date: 20090828
  Transmission Date: 20201104
  Serious: Yes (Other)
  Sender: FDA-Public Use
  Company Number: US-ROCHE-621441

PATIENT
  Age: 66 Year
  Sex: Female

DRUGS (5)
  1. IBANDRONIC ACID. [Suspect]
     Active Substance: IBANDRONIC ACID
     Indication: OSTEOPOROSIS
     Dosage: OTHER INDICATION: OSTEOPENIA
     Route: 048
     Dates: start: 2004
  2. PROTONIX [Concomitant]
     Active Substance: PANTOPRAZOLE SODIUM
  3. IBANDRONIC ACID. [Suspect]
     Active Substance: IBANDRONIC ACID
     Route: 048
     Dates: end: 200812
  4. LUNESTA [Concomitant]
     Active Substance: ESZOPICLONE
  5. HYDROCODONE [Concomitant]
     Active Substance: HYDROCODONE

REACTIONS (7)
  - Coeliac disease [Unknown]
  - Tooth extraction [Unknown]
  - Barrett^s oesophagus [Not Recovered/Not Resolved]
  - Dental implantation [Unknown]
  - Oropharyngeal pain [Recovered/Resolved]
  - Thyroid disorder [Unknown]
  - Palpitations [Recovered/Resolved]

NARRATIVE: CASE EVENT DATE: 20070101
